FAERS Safety Report 4930115-0 (Version None)
Quarter: 2006Q1

REPORT INFORMATION
  Report Type: 
  Country: None (occurrence: None)
  Receive Date: 20060302
  Receipt Date: 20040608
  Transmission Date: 20060701
  Serious: Yes (Life-Threatening)
  Sender: FDA-Public Use
  Company Number: GB-AMGEN-UK079734

PATIENT
  Sex: Female
  Weight: 65 kg

DRUGS (11)
  1. KINERET [Suspect]
     Indication: RHEUMATOID ARTHRITIS
     Dates: start: 20030101, end: 20030615
  2. METHOTREXATE [Concomitant]
  3. PREDNISOLONE [Concomitant]
  4. LITHIUM [Concomitant]
  5. MORPHINE [Concomitant]
  6. CO-PROXAMOL [Concomitant]
  7. ISONIAZID [Concomitant]
  8. HORMONE NOS [Concomitant]
  9. NITROGLYCERIN [Concomitant]
  10. CYCLOPHOSPHAMIDE [Concomitant]
  11. RITUXIMAB [Concomitant]

REACTIONS (1)
  - OVARIAN CANCER METASTATIC [None]
